FAERS Safety Report 13035554 (Version 3)
Quarter: 2017Q1

REPORT INFORMATION
  Report Type: Spontaneous
  Country: JP (occurrence: JP)
  Receive Date: 20161216
  Receipt Date: 20170104
  Transmission Date: 20170428
  Serious: Yes (Hospitalization, Other)
  Sender: FDA-Public Use
  Company Number: JP-ABBVIE-16P-087-1806432-00

PATIENT
  Age: 20 Year
  Sex: Male

DRUGS (11)
  1. CLOZAPINE. [Suspect]
     Active Substance: CLOZAPINE
     Route: 048
     Dates: start: 20160402
  2. CLOZAPINE. [Suspect]
     Active Substance: CLOZAPINE
     Route: 048
     Dates: start: 20160406
  3. VALPROIC ACID. [Suspect]
     Active Substance: VALPROIC ACID
     Route: 065
     Dates: start: 20160402
  4. CLOZAPINE. [Suspect]
     Active Substance: CLOZAPINE
     Indication: SCHIZOPHRENIA
     Route: 048
     Dates: start: 2014
  5. CLOZAPINE. [Suspect]
     Active Substance: CLOZAPINE
     Route: 048
     Dates: start: 201504
  6. CLOZAPINE. [Suspect]
     Active Substance: CLOZAPINE
     Route: 048
  7. VALPROIC ACID. [Suspect]
     Active Substance: VALPROIC ACID
     Route: 065
     Dates: start: 20160411
  8. VALPROIC ACID. [Suspect]
     Active Substance: VALPROIC ACID
     Route: 065
     Dates: start: 201604
  9. CLOZAPINE. [Suspect]
     Active Substance: CLOZAPINE
     Route: 048
     Dates: start: 201408
  10. CLOZAPINE. [Suspect]
     Active Substance: CLOZAPINE
     Route: 048
     Dates: start: 201604
  11. VALPROIC ACID. [Suspect]
     Active Substance: VALPROIC ACID
     Indication: IMPULSIVE BEHAVIOUR
     Route: 065
     Dates: start: 201504

REACTIONS (5)
  - Blood creatine phosphokinase increased [Unknown]
  - Prescribed overdose [Unknown]
  - Bacterial infection [Unknown]
  - Generalised tonic-clonic seizure [Recovered/Resolved]
  - Schizophrenia [Recovered/Resolved]

NARRATIVE: CASE EVENT DATE: 20160404
